FAERS Safety Report 13562490 (Version 4)
Quarter: 2018Q1

REPORT INFORMATION
  Report Type: Spontaneous
  Country: US (occurrence: US)
  Receive Date: 20170519
  Receipt Date: 20180330
  Transmission Date: 20180508
  Serious: No
  Sender: FDA-Public Use
  Company Number: US-TEVA-762669ACC

PATIENT
  Age: 44 Year
  Sex: Female

DRUGS (14)
  1. MOBIC [Concomitant]
     Active Substance: MELOXICAM
     Dates: start: 20161029
  2. ZYRTEC ALLGY [Concomitant]
     Dates: start: 20171004
  3. FLONASE [Concomitant]
     Active Substance: FLUTICASONE PROPIONATE
     Dates: start: 20161029
  4. MODAFINIL. [Concomitant]
     Active Substance: MODAFINIL
     Dates: start: 20171004
  5. AMOXICILLIN. [Concomitant]
     Active Substance: AMOXICILLIN
     Dates: start: 20160525, end: 20160819
  6. TEGRETOL [Concomitant]
     Active Substance: CARBAMAZEPINE
     Dates: start: 20180131
  7. VITAMIN B COMPLEX [Concomitant]
     Active Substance: CYANOCOBALAMIN\DEXPANTHENOL\NIACINAMIDE\PYRIDOXINE HYDROCHLORIDE\RIBOFLAVIN 5^-PHOSPHATE SODIUM\THIAMINE HYDROCHLORIDE\VITAMIN B COMPLEX
     Dates: start: 20160525
  8. LEXAPRO [Concomitant]
     Active Substance: ESCITALOPRAM OXALATE
     Dates: start: 20180131
  9. NEXPLANON [Concomitant]
     Active Substance: ETONOGESTREL
     Dates: start: 20160525
  10. COPAXONE [Suspect]
     Active Substance: GLATIRAMER ACETATE
     Indication: MULTIPLE SCLEROSIS
     Route: 058
     Dates: start: 20160526
  11. CYMBALTA [Concomitant]
     Active Substance: DULOXETINE HYDROCHLORIDE
     Dates: start: 20160819
  12. GABAPENTIN. [Concomitant]
     Active Substance: GABAPENTIN
     Dates: start: 20160525
  13. VITAMIN D3 [Concomitant]
     Active Substance: CHOLECALCIFEROL
     Dates: start: 20160525
  14. EFFEXOR [Concomitant]
     Active Substance: VENLAFAXINE HYDROCHLORIDE
     Dates: start: 20160525, end: 20160819

REACTIONS (8)
  - Fall [Unknown]
  - Muscle spasms [Not Recovered/Not Resolved]
  - Depression [Unknown]
  - Fatigue [Unknown]
  - Anxiety [Not Recovered/Not Resolved]
  - Drug dose omission [Not Recovered/Not Resolved]
  - Injection site reaction [Not Recovered/Not Resolved]
  - Depression [Not Recovered/Not Resolved]

NARRATIVE: CASE EVENT DATE: 201702
